FAERS Safety Report 7988459-4 (Version None)
Quarter: 2011Q4

REPORT INFORMATION
  Report Type: 
  Country: None (occurrence: None)
  Receive Date: 20111216
  Receipt Date: 20111129
  Transmission Date: 20120403
  Serious: Yes (Other)
  Sender: FDA-Public Use
  Company Number: JP-PFIZER INC-2011287939

PATIENT
  Age: 72 Year
  Sex: Male

DRUGS (2)
  1. GEMZAR [Concomitant]
  2. LYRICA [Suspect]
     Dosage: 150 MG/DAY
     Route: 048

REACTIONS (1)
  - INTERSTITIAL LUNG DISEASE [None]
